FAERS Safety Report 10145616 (Version 1)
Quarter: 2014Q2

REPORT INFORMATION
  Report Type: Spontaneous
  Country: US (occurrence: US)
  Receive Date: 20140501
  Receipt Date: 20140501
  Transmission Date: 20141212
  Serious: Yes (Other)
  Sender: FDA-Public Use
  Company Number: US-SA-2014SA052725

PATIENT
  Age: 34 Year
  Sex: Female

DRUGS (8)
  1. CLOMID [Suspect]
     Indication: INFERTILITY
     Route: 065
  2. HUMIRA [Suspect]
     Indication: PSORIATIC ARTHROPATHY
     Route: 065
     Dates: start: 2010
  3. HUMIRA [Suspect]
     Indication: PSORIATIC ARTHROPATHY
     Route: 065
  4. HUMIRA [Suspect]
     Indication: PSORIATIC ARTHROPATHY
     Route: 065
     Dates: start: 201309
  5. RANITIDINE [Concomitant]
  6. ZYRTEC [Concomitant]
     Indication: HYPERSENSITIVITY
  7. SINGULAIR [Concomitant]
     Indication: ASTHMA
  8. SINGULAIR [Concomitant]
     Indication: DRUG HYPERSENSITIVITY

REACTIONS (16)
  - Abortion spontaneous [Unknown]
  - Exposure during pregnancy [Unknown]
  - Gastrointestinal infection [Unknown]
  - Cellulitis [Unknown]
  - Ovarian cyst [Recovered/Resolved]
  - Ovarian cyst [Unknown]
  - Abdominal pain [Unknown]
  - Drug ineffective [Unknown]
  - Arthritis [Unknown]
  - Infertility [Unknown]
  - Fatigue [Unknown]
  - Temperature intolerance [Unknown]
  - Dysphonia [Unknown]
  - Onychoclasis [Unknown]
  - Vitamin D decreased [Unknown]
  - Sinusitis [Unknown]
